FAERS Safety Report 18648796 (Version 1)
Quarter: 2020Q4

REPORT INFORMATION
  Report Type: Other
  Country: US (occurrence: US)
  Receive Date: 20201222
  Receipt Date: 20201222
  Transmission Date: 20210114
  Serious: Yes (Other)
  Sender: FDA-Public Use
  Company Number: US-DEXPHARM-20201147

PATIENT
  Sex: Male

DRUGS (4)
  1. OMEPRAZOLE. [Suspect]
     Active Substance: OMEPRAZOLE
  2. NIVOLUMAB [Interacting]
     Active Substance: NIVOLUMAB
     Route: 042
  3. PREDNISONE. [Concomitant]
     Active Substance: PREDNISONE
     Indication: POLYMYALGIA RHEUMATICA
     Route: 048
  4. PREDNISONE. [Concomitant]
     Active Substance: PREDNISONE
     Indication: POLYMYALGIA RHEUMATICA
     Dosage: LONG-TERM LOW DOSE
     Route: 048

REACTIONS (4)
  - Renal tubular acidosis [Recovering/Resolving]
  - Tubulointerstitial nephritis [Recovering/Resolving]
  - Arteriosclerosis [Recovering/Resolving]
  - Drug interaction [Recovered/Resolved]
